FAERS Safety Report 8842215 (Version 2)
Quarter: 2014Q2

REPORT INFORMATION
  Report Type: Spontaneous
  Country: US (occurrence: US)
  Receive Date: 20121016
  Receipt Date: 20140523
  Transmission Date: 20141212
  Serious: Yes (Other)
  Sender: FDA-Public Use
  Company Number: US-BAYER-2012-106883

PATIENT
  Age: 41 Year
  Sex: Female
  Weight: 147.39 kg

DRUGS (11)
  1. YASMIN [Suspect]
     Indication: ACNE
     Dosage: UNK
     Dates: start: 2009
  2. YASMIN [Suspect]
     Indication: MENOPAUSAL SYMPTOMS
  3. YASMIN [Suspect]
     Indication: PREMENSTRUAL SYNDROME
  4. YAZ [Suspect]
     Indication: ACNE
     Dosage: UNK
     Dates: start: 2009
  5. YAZ [Suspect]
     Indication: MENOPAUSAL SYMPTOMS
  6. YAZ [Suspect]
     Indication: PREMENSTRUAL SYNDROME
  7. CALCIUM CITRATE W/VITAMIN D NOS [Concomitant]
     Dosage: UNK
     Route: 048
     Dates: start: 20071011
  8. ALBUTEROL [Concomitant]
     Indication: CHEST DISCOMFORT
     Dosage: 1 TO  2 PUFFS
     Dates: start: 20071218
  9. ALBUTEROL [Concomitant]
     Indication: COUGH
  10. ALBUTEROL [Concomitant]
     Indication: WHEEZING
  11. PRENATAL VITAMINS [Concomitant]
     Dosage: UNK
     Route: 048
     Dates: start: 20071203

REACTIONS (10)
  - Pulmonary embolism [None]
  - Gallbladder disorder [None]
  - Endometrial cancer [None]
  - Blood pressure increased [None]
  - Cardiac disorder [None]
  - Bulimia nervosa [None]
  - Injury [None]
  - Mental disorder [None]
  - Chest pain [None]
  - Dyspnoea [None]
